FAERS Safety Report 7917710-1 (Version None)
Quarter: 2011Q4

REPORT INFORMATION
  Report Type: 
  Country: None (occurrence: None)
  Receive Date: 20111116
  Receipt Date: 20111114
  Transmission Date: 20120403
  Serious: Yes (Hospitalization)
  Sender: FDA-Public Use
  Company Number: US-ALEXION PHARMACEUTICALS INC.-A201101685

PATIENT
  Age: 9 Month
  Sex: Female

DRUGS (2)
  1. KEPPRA [Concomitant]
     Indication: CONVULSION
     Dosage: 200 MG, BID (EVERY 12 HOURS)
  2. SOLIRIS [Suspect]
     Indication: HAEMOLYTIC URAEMIC SYNDROME
     Dosage: UNK
     Route: 042
     Dates: start: 20111104, end: 20111106

REACTIONS (1)
  - GENERAL PHYSICAL HEALTH DETERIORATION [None]
